FAERS Safety Report 6469986-8 (Version None)
Quarter: 2009Q4

REPORT INFORMATION
  Report Type: 
  Country: None (occurrence: None)
  Receive Date: 20091203
  Receipt Date: 20080107
  Transmission Date: 20100525
  Serious: Yes (Life-Threatening, Hospitalization)
  Sender: FDA-Public Use
  Company Number: US-ELI_LILLY_AND_COMPANY-US200712002525

PATIENT
  Age: 51 Year
  Sex: Female

DRUGS (14)
  1. CYMBALTA [Suspect]
     Indication: DEPRESSION
     Dosage: 60 MG, EACH EVENING
  2. CELEBREX [Concomitant]
  3. TRAZODONE HCL [Concomitant]
  4. LORAZEPAM [Concomitant]
  5. NORCO [Concomitant]
  6. BUPROPION HCL [Concomitant]
  7. ALBUTEROL [Concomitant]
  8. SOMA [Concomitant]
  9. CLARINEX [Concomitant]
  10. OMEPRAZOLE [Concomitant]
  11. OXYCODONE HCL [Concomitant]
     Indication: PAIN
     Dosage: 5 MG, AS NEEDED
  12. AZATHIOPRINE [Concomitant]
  13. ACETYLCYSTEINE [Concomitant]
  14. PREDNISONE [Concomitant]

REACTIONS (3)
  - INTERSTITIAL LUNG DISEASE [None]
  - PULMONARY FIBROSIS [None]
  - RESPIRATORY FAILURE [None]
